FAERS Safety Report 7301189-7 (Version None)
Quarter: 2011Q1

REPORT INFORMATION
  Report Type: 
  Country: None (occurrence: None)
  Receive Date: 20110112
  Receipt Date: 20090612
  Transmission Date: 20110831
  Serious: Yes (Hospitalization)
  Sender: FDA-Public Use
  Company Number: THYM-1001070

PATIENT
  Age: 53 Year
  Sex: Female

DRUGS (2)
  1. THYMOGLOBULIN [Suspect]
     Indication: PANCREAS TRANSPLANT REJECTION
     Dates: start: 20090523, end: 20090529
  2. STEROIDS [Concomitant]

REACTIONS (1)
  - SERUM SICKNESS [None]
